FAERS Safety Report 9459984 (Version 1)
Quarter: 2013Q3

REPORT INFORMATION
  Report Type: Spontaneous
  Country: FR (occurrence: FR)
  Receive Date: 20130815
  Receipt Date: 20130815
  Transmission Date: 20140515
  Serious: Yes (Other)
  Sender: FDA-Public Use
  Company Number: FR-EISAI INC-E2090-02801-SPO-FR

PATIENT
  Sex: 0

DRUGS (1)
  1. ZONISAMIDE [Suspect]
     Indication: PARTIAL SEIZURES
     Dosage: UNKNOWN
     Route: 048

REACTIONS (1)
  - Agranulocytosis [Unknown]
